FAERS Safety Report 6115105-7 (Version None)
Quarter: 2009Q1

REPORT INFORMATION
  Report Type: 
  Country: None (occurrence: None)
  Receive Date: 20090311
  Receipt Date: 20080922
  Transmission Date: 20090719
  Serious: Yes (Hospitalization)
  Sender: FDA-Public Use
  Company Number: US200808001737

PATIENT
  Sex: Female
  Weight: 84.4 kg

DRUGS (3)
  1. GEMZAR [Suspect]
     Dosage: OTHER; 4 WEEKS
     Dates: start: 20080101, end: 20080801
  2. CARBOPLATIN [Concomitant]
  3. ANTILIPID (GEMFIBROZIL) [Concomitant]

REACTIONS (1)
  - CEREBROVASCULAR ACCIDENT [None]
